FAERS Safety Report 5476557-9 (Version None)
Quarter: 2007Q3

REPORT INFORMATION
  Report Type: 
  Country: None (occurrence: None)
  Receive Date: 20070926
  Receipt Date: 20070416
  Transmission Date: 20080115
  Serious: Yes (Hospitalization, Other)
  Sender: FDA-Public Use
  Company Number: 2006045073

PATIENT
  Age: 81 Year
  Sex: Female
  Weight: 59.9 kg

DRUGS (14)
  1. ZYRTEC [Suspect]
     Indication: MULTIPLE ALLERGIES
     Dosage: 10 MG (10 MG, 1 IN 1 D), ORAL
     Route: 048
     Dates: start: 20050310
  2. ZYRTEC [Suspect]
     Indication: RHINITIS
     Dosage: 10 MG (10 MG, 1 IN 1 D), ORAL
     Route: 048
     Dates: start: 20050310
  3. ALL OTHER THERAPEUTIC PRODUCTS (ALL OTHER THERAPEUTIC PRODUCTS) [Concomitant]
  4. LOTREL [Concomitant]
  5. GLYBURIDE [Concomitant]
  6. ACTOS [Concomitant]
  7. VALSARTAN [Concomitant]
  8. ATENOLOL [Concomitant]
  9. ISOSORBIDE (ISOSORBIDE) [Concomitant]
  10. ACETYLSALICYLIC ACID SRT [Concomitant]
  11. ALL OTHER THERAPEUTIC PRODUCTS (ALL OTHER THERAPEUTIC PRODUCTS) [Concomitant]
  12. RHINOCORT [Concomitant]
  13. ASTELIN [Concomitant]
  14. ATROVENT [Concomitant]

REACTIONS (8)
  - DIABETIC COMPLICATION [None]
  - HILAR LYMPHADENOPATHY [None]
  - HYPERSENSITIVITY [None]
  - NASAL CONGESTION [None]
  - NASAL SEPTUM DEVIATION [None]
  - NASAL TURBINATE HYPERTROPHY [None]
  - RHINITIS [None]
  - SNEEZING [None]
